FAERS Safety Report 8421406-X (Version None)
Quarter: 2012Q2

REPORT INFORMATION
  Report Type: 
  Country: None (occurrence: None)
  Receive Date: 20120608
  Receipt Date: 20120529
  Transmission Date: 20120825
  Serious: Yes (Hospitalization)
  Sender: FDA-Public Use
  Company Number: CA-JNJFOC-20120306022

PATIENT
  Sex: Female
  Weight: 65 kg

DRUGS (2)
  1. REMICADE [Suspect]
     Indication: CROHN'S DISEASE
     Dosage: 350 (UNITS UNSPECIFIED)
     Route: 042
     Dates: start: 20120328
  2. REMICADE [Suspect]
     Dosage: 350 (UNITS UNSPECIFIED)
     Route: 042
     Dates: start: 20100810

REACTIONS (2)
  - DEEP VEIN THROMBOSIS [None]
  - PULMONARY EMBOLISM [None]
